FAERS Safety Report 8062244 (Version 3)
Quarter: 2012Q4

REPORT INFORMATION
  Report Type: 
  Country: US (occurrence: US)
  Receive Date: 20110801
  Receipt Date: 20121003
  Transmission Date: 20130627
  Serious: Yes (Death, Hospitalization)
  Sender: FDA-Public Use
  Company Number: US-BAYER-2011-066481

PATIENT
  Age: 25 Year
  Sex: Female
  Weight: 114.29 kg

DRUGS (4)
  1. YASMIN [Suspect]
     Indication: CONTRACEPTION
     Dosage: UNK
     Dates: start: 20090803, end: 201005
  2. ADVIL [IBUPROFEN] [Concomitant]
     Indication: BACK PAIN
  3. TYLENOL [PARACETAMOL] [Concomitant]
  4. DOXYCYCLINE [Concomitant]
     Indication: VAGINAL INFECTION
     Dosage: UNK
     Dates: start: 201005

REACTIONS (3)
  - Injury [Fatal]
  - Deep vein thrombosis [Fatal]
  - Pulmonary embolism [Fatal]
